FAERS Safety Report 5380682-0 (Version None)
Quarter: 2007Q3

REPORT INFORMATION
  Report Type: 
  Country: None (occurrence: None)
  Receive Date: 20070706
  Receipt Date: 20070626
  Transmission Date: 20080115
  Serious: Yes (Other)
  Sender: FDA-Public Use
  Company Number: A0661943A

PATIENT
  Weight: 50 kg

DRUGS (3)
  1. TUMS [Suspect]
     Indication: PROPHYLAXIS
     Route: 048
  2. ALEVE [Suspect]
     Dosage: 220MG TWICE PER DAY
     Route: 048
     Dates: start: 20070617
  3. FOSAMAX [Concomitant]

REACTIONS (2)
  - ABDOMINAL PAIN UPPER [None]
  - RECTAL HAEMORRHAGE [None]
